FAERS Safety Report 4542669-7 (Version None)
Quarter: 2004Q4

REPORT INFORMATION
  Report Type: 
  Country: None (occurrence: None)
  Receive Date: 20041230
  Receipt Date: 20041005
  Transmission Date: 20050328
  Serious: Yes (Hospitalization, Other)
  Sender: FDA-Public Use
  Company Number: US-MERCK-0410USA00744

PATIENT
  Age: 57 Year
  Sex: Male
  Weight: 141 kg

DRUGS (9)
  1. LISINOPRIL [Concomitant]
     Route: 065
  2. LIPITOR [Concomitant]
     Route: 065
  3. GEMFIBROZIL [Concomitant]
     Route: 065
  4. COUMADIN [Concomitant]
     Route: 065
  5. METOPROLOL [Concomitant]
     Route: 065
  6. ZETIA [Concomitant]
     Route: 065
  7. FUROSEMIDE [Concomitant]
     Route: 065
  8. LANOXIN [Concomitant]
     Route: 065
  9. VIOXX [Suspect]
     Indication: ARTHRITIS
     Route: 048
     Dates: start: 20000101, end: 20040101

REACTIONS (49)
  - ADVERSE EVENT [None]
  - ANXIETY [None]
  - ARTHRALGIA [None]
  - ATRIAL FIBRILLATION [None]
  - BLOOD GLUCOSE DECREASED [None]
  - BRONCHITIS [None]
  - CARDIAC DISORDER [None]
  - CELLULITIS [None]
  - CERUMEN IMPACTION [None]
  - CONSTIPATION [None]
  - COUGH [None]
  - DIABETES MELLITUS NON-INSULIN-DEPENDENT [None]
  - DIARRHOEA [None]
  - DYSPNOEA EXERTIONAL [None]
  - EAR INFECTION [None]
  - ERECTILE DYSFUNCTION [None]
  - GASTROENTERITIS [None]
  - GASTROOESOPHAGEAL REFLUX DISEASE [None]
  - GRAVITATIONAL OEDEMA [None]
  - HAEMORRHOIDS [None]
  - HAEMOTHORAX [None]
  - HYPERTENSION [None]
  - HYPOGLYCAEMIA [None]
  - HYPOTENSION [None]
  - INSOMNIA [None]
  - INTERTRIGO [None]
  - LOOSE STOOLS [None]
  - LYMPHADENITIS [None]
  - MYOCARDIAL INFARCTION [None]
  - NAIL AVULSION [None]
  - NAUSEA [None]
  - NECK PAIN [None]
  - NOCTURIA [None]
  - OEDEMA PERIPHERAL [None]
  - OSTEOARTHRITIS [None]
  - OTORRHOEA [None]
  - PAIN IN EXTREMITY [None]
  - PHARYNGITIS [None]
  - POSTNASAL DRIP [None]
  - POSTOPERATIVE INFECTION [None]
  - RHINITIS ALLERGIC [None]
  - SINUS CONGESTION [None]
  - SKIN DISORDER [None]
  - SKIN ULCER [None]
  - SLEEP APNOEA SYNDROME [None]
  - THROAT IRRITATION [None]
  - UPPER RESPIRATORY TRACT INFECTION [None]
  - VENOUS STASIS [None]
  - VIRAL INFECTION [None]
